FAERS Safety Report 5104529-2 (Version None)
Quarter: 2006Q3

REPORT INFORMATION
  Report Type: 
  Country: None (occurrence: None)
  Receive Date: 20060914
  Receipt Date: 20060724
  Transmission Date: 20061208
  Serious: Yes (Life-Threatening, Hospitalization)
  Sender: FDA-Public Use
  Company Number: JP-AVENTIS-200612317JP

PATIENT
  Age: 73 Year
  Sex: Male
  Weight: 55 kg

DRUGS (15)
  1. TAXOTERE [Suspect]
     Indication: PROSTATE CANCER RECURRENT
     Route: 041
     Dates: start: 20060704, end: 20060711
  2. PARAPLATIN [Suspect]
     Indication: PROSTATE CANCER RECURRENT
     Route: 041
     Dates: start: 20060704, end: 20060704
  3. ESTRACYT [Concomitant]
     Indication: PROSTATE CANCER RECURRENT
     Dosage: DOSE: 4CAPSULES
     Route: 048
     Dates: start: 20050729
  4. DECADRON [Concomitant]
     Indication: PROSTATE CANCER RECURRENT
     Route: 048
     Dates: start: 20051126
  5. OXYCONTIN [Concomitant]
     Indication: PROSTATE CANCER RECURRENT
     Route: 048
     Dates: start: 20060705
  6. NOVAMIN [Concomitant]
     Indication: PROSTATE CANCER RECURRENT
     Route: 048
     Dates: start: 20060705
  7. LOXONIN [Concomitant]
     Indication: PROSTATE CANCER RECURRENT
     Route: 048
     Dates: start: 20060405
  8. LASIX [Concomitant]
     Indication: PROSTATE CANCER RECURRENT
     Route: 048
     Dates: start: 20030517
  9. UBRETID [Concomitant]
     Indication: NEUROGENIC BLADDER
     Dates: start: 20040123, end: 20060806
  10. GASTER [Concomitant]
     Indication: PROPHYLAXIS AGAINST GASTROINTESTINAL ULCER
  11. ADALAT [Concomitant]
     Indication: HYPERTENSION
  12. SIGMART [Concomitant]
     Indication: ANGINA PECTORIS
  13. ISOSORBIDE MONONITRATE [Concomitant]
     Indication: ANGINA PECTORIS
  14. CARDENALIN [Concomitant]
     Indication: HYPERTENSION
  15. HERBESSER [Concomitant]
     Indication: ANGINA PECTORIS

REACTIONS (2)
  - DECREASED APPETITE [None]
  - DISSEMINATED INTRAVASCULAR COAGULATION [None]
